FAERS Safety Report 10004031 (Version 2)
Quarter: 2014Q1

REPORT INFORMATION
  Report Type: Spontaneous
  Country: JP (occurrence: JP)
  Receive Date: 20140312
  Receipt Date: 20140312
  Transmission Date: 20141002
  Serious: Yes (Death, Other)
  Sender: FDA-Public Use
  Company Number: PHHY2012JP101241

PATIENT
  Age: 50 Year
  Sex: Male

DRUGS (8)
  1. CYTARABINE [Suspect]
     Indication: CHRONIC MYELOID LEUKAEMIA
     Dosage: 2 G/M2 IN 3 HOURS
  2. CICLOSPORIN [Suspect]
     Indication: PROPHYLAXIS AGAINST GRAFT VERSUS HOST DISEASE
  3. PREDNISOLONE [Suspect]
     Indication: PROPHYLAXIS AGAINST GRAFT VERSUS HOST DISEASE
  4. METHOTREXATE [Suspect]
     Indication: PROPHYLAXIS AGAINST GRAFT VERSUS HOST DISEASE
  5. BUSULFAN [Suspect]
     Indication: CHRONIC MYELOID LEUKAEMIA
     Dosage: 3.2 MG/KG, QD
     Route: 042
  6. CYCLOPHOSPHAMIDE [Suspect]
     Indication: CHRONIC MYELOID LEUKAEMIA
     Dosage: 60 MG/KG, QD
  7. CYCLOPHOSPHAMIDE [Suspect]
     Indication: CHRONIC MYELOID LEUKAEMIA
  8. ACYCLOVIR [Concomitant]
     Indication: HERPES SIMPLEX
     Dosage: 1000 MG, UNK
     Route: 048

REACTIONS (4)
  - Pneumonia [Fatal]
  - Cytomegalovirus infection [Unknown]
  - Cystitis haemorrhagic [Unknown]
  - Acute graft versus host disease [Unknown]
